FAERS Safety Report 10948587 (Version 1)
Quarter: 2015Q1

REPORT INFORMATION
  Report Type: Spontaneous
  Country: GB (occurrence: None)
  Receive Date: 20150323
  Receipt Date: 20150323
  Transmission Date: 20150721
  Serious: Yes (Other)
  Sender: FDA-Public Use
  Company Number: None

PATIENT
  Age: 48 Year
  Sex: Female
  Weight: 73.94 kg

DRUGS (7)
  1. SYNTHROID [Concomitant]
     Active Substance: LEVOTHYROXINE SODIUM
  2. MAGNESIUM [Concomitant]
     Active Substance: MAGNESIUM
  3. PHOSPHATE [Concomitant]
     Active Substance: UNSPECIFIED INGREDIENT
  4. IRON [Concomitant]
     Active Substance: IRON
  5. BUPROPION SR 100 MG [Suspect]
     Active Substance: BUPROPION
     Indication: WEIGHT CONTROL
     Dosage: 2 PILLS /DAY TWICE DAILY TAKEN BY MOUTH
     Route: 048
  6. OXYBUTYNIN [Concomitant]
     Active Substance: OXYBUTYNIN
  7. MULTIVITAMIN [Concomitant]
     Active Substance: VITAMINS

REACTIONS (14)
  - Product quality issue [None]
  - Crying [None]
  - Unevaluable event [None]
  - Hyperhidrosis [None]
  - Feeling abnormal [None]
  - Vomiting [None]
  - Violence-related symptom [None]
  - Headache [None]
  - Pain [None]
  - Nightmare [None]
  - Decreased activity [None]
  - Anger [None]
  - Irritability [None]
  - Tremor [None]
